FAERS Safety Report 4946508-1 (Version None)
Quarter: 2006Q1

REPORT INFORMATION
  Report Type: 
  Country: None (occurrence: None)
  Receive Date: 20060317
  Receipt Date: 20060307
  Transmission Date: 20060701
  Serious: Yes (Other)
  Sender: FDA-Public Use
  Company Number: CA-AVENTIS-200612211GDDC

PATIENT
  Sex: Male

DRUGS (2)
  1. GLUCOPHAGE [Suspect]
     Dosage: DOSE: UNK
     Route: 048
  2. DIABETA [Suspect]
     Dosage: DOSE: UNK
     Route: 048

REACTIONS (1)
  - NEPHRITIS INTERSTITIAL [None]
